FAERS Safety Report 7447496-9 (Version None)
Quarter: 2011Q2

REPORT INFORMATION
  Report Type: 
  Country: None (occurrence: None)
  Receive Date: 20110421
  Receipt Date: 20110411
  Transmission Date: 20111010
  Serious: Yes (Hospitalization)
  Sender: FDA-Public Use
  Company Number: 1000020138

PATIENT
  Age: 93 Year
  Sex: Female

DRUGS (8)
  1. ALLOPURINOL [Suspect]
     Indication: GOUT
     Dosage: 300 MG (300 MG, 1 IN 1 D),ORAL
     Route: 048
     Dates: end: 20110117
  2. LEVOTHYROXINE SODIUM [Concomitant]
  3. ATACAND [Suspect]
     Indication: HYPERTENSION
     Dosage: 16 MG (16 MG, 1 IN 1 D),ORAL
     Route: 048
     Dates: start: 20110106, end: 20110117
  4. COLCHIMAX(COLCHICINE, TIEMONIUM METHYSULFATE, PAPAVER SOMNIFERUM POWDE [Suspect]
     Indication: GOUT
     Dosage: ORAL
     Route: 048
     Dates: end: 20110117
  5. DIGOXIN [Suspect]
     Indication: ATRIAL FIBRILLATION
     Dosage: ORAL
     Route: 048
     Dates: end: 20110117
  6. PREVISCAN (FLUINDIONE) [Suspect]
     Dosage: ORAL
     Route: 048
     Dates: end: 20110117
  7. NEBIVOLOL HCL [Suspect]
     Indication: HYPERTENSION
     Dosage: 5 MG (5 MG, 1 IN 1 D),ORAL
     Route: 048
     Dates: start: 20110106, end: 20110117
  8. FORLAX (MACROGOL)(MACROGOL) [Concomitant]

REACTIONS (7)
  - ALTERED STATE OF CONSCIOUSNESS [None]
  - DISORIENTATION [None]
  - GENERAL PHYSICAL HEALTH DETERIORATION [None]
  - HYPOTENSION [None]
  - RENAL FAILURE ACUTE [None]
  - AGGRESSION [None]
  - AGITATION [None]
